FAERS Safety Report 18958514 (Version 1)
Quarter: 2021Q1

REPORT INFORMATION
  Report Type: Spontaneous
  Country: US (occurrence: US)
  Receive Date: 20210302
  Receipt Date: 20210302
  Transmission Date: 20210420
  Serious: No
  Sender: FDA-Public Use
  Company Number: US-BIOVITRUM-2021US2101

PATIENT
  Sex: Male
  Weight: 10.47 kg

DRUGS (6)
  1. SYNAGIS [Suspect]
     Active Substance: PALIVIZUMAB
     Indication: LEFT VENTRICULAR FAILURE
  2. EPINEPHRINE HCL [Concomitant]
     Active Substance: EPINEPHRINE
  3. CAPTOPRIL. [Concomitant]
     Active Substance: CAPTOPRIL
  4. SYNAGIS [Suspect]
     Active Substance: PALIVIZUMAB
     Indication: PREMATURE BABY
     Route: 030
     Dates: start: 202012
  5. SILDENAFIL CITRATE. [Concomitant]
     Active Substance: SILDENAFIL CITRATE
  6. SYNAGIS [Suspect]
     Active Substance: PALIVIZUMAB
     Indication: PULMONARY HYPERTENSION

REACTIONS (1)
  - Weight decreased [Not Recovered/Not Resolved]
